FAERS Safety Report 7742944-9 (Version None)
Quarter: 2011Q3

REPORT INFORMATION
  Report Type: 
  Country: None (occurrence: None)
  Receive Date: 20110912
  Receipt Date: 20110901
  Transmission Date: 20111222
  Serious: Yes (Hospitalization)
  Sender: FDA-Public Use
  Company Number: JP-ELI_LILLY_AND_COMPANY-JP201108000501

PATIENT
  Age: 55 Year
  Sex: Female

DRUGS (2)
  1. HYALURONIC ACID [Concomitant]
     Indication: ARTHRALGIA
     Dosage: UNK, WEEKLY (1/W)
  2. EVISTA [Suspect]
     Indication: OSTEOPOROSIS
     Dosage: 60 MG, QD
     Route: 048
     Dates: start: 20091024, end: 20101101

REACTIONS (1)
  - CEREBRAL INFARCTION [None]
